FAERS Safety Report 6696976-2 (Version None)
Quarter: 2010Q2

REPORT INFORMATION
  Report Type: 
  Country: None (occurrence: None)
  Receive Date: 20100426
  Receipt Date: 20100419
  Transmission Date: 20101027
  Serious: Yes (Hospitalization, Other)
  Sender: FDA-Public Use
  Company Number: PHHO2010JP04250

PATIENT
  Sex: Male
  Weight: 57 kg

DRUGS (12)
  1. CERTICAN [Suspect]
     Indication: RENAL TRANSPLANT
     Dosage: UNK
     Route: 048
     Dates: start: 20090812, end: 20100418
  2. NEORAL [Suspect]
     Indication: RENAL TRANSPLANT
     Dosage: 50 MG, QD
     Dates: start: 20090302
  3. PREDNISOLONE [Suspect]
     Indication: RENAL TRANSPLANT
     Dosage: 5 MG, QD
     Route: 048
     Dates: start: 20090908
  4. ISODINE [Concomitant]
     Indication: INFECTION PROPHYLAXIS
     Dosage: UNK
  5. HALIZON [Concomitant]
     Indication: PROPHYLAXIS
     Dosage: UNK
  6. PROTECADIN [Concomitant]
     Indication: GASTRITIS PROPHYLAXIS
     Dosage: UNK
  7. COTRIM [Concomitant]
     Indication: INFECTION PROPHYLAXIS
  8. ASPIRIN [Concomitant]
     Indication: THROMBOSIS PROPHYLAXIS
     Dosage: UNK
  9. PERSANTINE [Concomitant]
     Indication: THROMBOSIS PROPHYLAXIS
     Dosage: UNK
  10. BEZATOL - SLOW RELEASE [Concomitant]
     Indication: HYPERTRIGLYCERIDAEMIA
     Dosage: UNK
  11. FERROMIA [Concomitant]
     Indication: ANAEMIA
  12. SIMULECT [Concomitant]
     Indication: RENAL TRANSPLANT

REACTIONS (3)
  - EPSTEIN-BARR VIRUS ASSOCIATED LYMPHOPROLIFERATIVE DISORDER [None]
  - INTERLEUKIN-2 RECEPTOR INCREASED [None]
  - LYMPHOMA [None]
